FAERS Safety Report 8538665-5 (Version None)
Quarter: 2012Q3

REPORT INFORMATION
  Report Type: 
  Country: None (occurrence: None)
  Receive Date: 20120718
  Receipt Date: 20120718
  Transmission Date: 20120928
  Serious: Yes (Other)
  Sender: FDA-Public Use
  Company Number: None

PATIENT
  Age: 54 Year
  Sex: Female
  Weight: 95.709 kg

DRUGS (1)
  1. ABILIFY [Suspect]
     Indication: BIPOLAR DISORDER
     Dosage: ?? 7.5 MG ?? DAILY MOUTH
     Route: 048
     Dates: start: 20080501, end: 20091201

REACTIONS (8)
  - DEPRESSED MOOD [None]
  - WEIGHT INCREASED [None]
  - SLEEP APNOEA SYNDROME [None]
  - HYPOTENSION [None]
  - GASTROOESOPHAGEAL REFLUX DISEASE [None]
  - MANIA [None]
  - HYPERLIPIDAEMIA [None]
  - HYPERTENSION [None]
